FAERS Safety Report 16993871 (Version 1)
Quarter: 2019Q4

REPORT INFORMATION
  Report Type: Spontaneous
  Country: US (occurrence: US)
  Receive Date: 20190923
  Receipt Date: 20190923
  Transmission Date: 20200122
  Serious: Yes (Other)
  Sender: FDA-Public Use
  Company Number: None

PATIENT
  Age: 67 Year
  Sex: Female
  Weight: 58.97 kg

DRUGS (6)
  1. EVENING PRIMROSE [Concomitant]
  2. MULTI [Concomitant]
  3. CHLORELLA [Concomitant]
  4. CIPROFLOXACIN HCL [Suspect]
     Active Substance: CIPROFLOXACIN HYDROCHLORIDE
     Indication: KIDNEY INFECTION
     Dosage: ?          QUANTITY:1 DF DOSAGE FORM;?
     Route: 048
     Dates: start: 20190907, end: 20190908
  5. PROBIOTICS [Concomitant]
     Active Substance: PROBIOTICS NOS
  6. TUMERIC [Concomitant]
     Active Substance: HERBALS\TURMERIC

REACTIONS (6)
  - Pain in extremity [None]
  - Pain in jaw [None]
  - Loss of personal independence in daily activities [None]
  - Gait disturbance [None]
  - Tendon pain [None]
  - Tendon disorder [None]

NARRATIVE: CASE EVENT DATE: 20190908
